FAERS Safety Report 11212579 (Version 2)
Quarter: 2015Q4

REPORT INFORMATION
  Report Type: Spontaneous
  Country: US (occurrence: US)
  Receive Date: 20150623
  Receipt Date: 20151204
  Transmission Date: 20160304
  Serious: No
  Sender: FDA-Public Use
  Company Number: US-BAYER-2015-349826

PATIENT
  Sex: Female

DRUGS (1)
  1. OXYTROL FOR WOMEN [Suspect]
     Active Substance: OXYBUTYNIN
     Indication: HYPERTONIC BLADDER
     Dosage: UNK, APPLY ONE EVERY FOUR DAYS
     Route: 061
     Dates: start: 2015

REACTIONS (3)
  - Application site pruritus [Unknown]
  - Application site rash [Unknown]
  - Wrong technique in product usage process [Unknown]

NARRATIVE: CASE EVENT DATE: 2015
